FAERS Safety Report 25968386 (Version 1)
Quarter: 2025Q4

REPORT INFORMATION
  Report Type: Spontaneous
  Country: TW (occurrence: TW)
  Receive Date: 20251028
  Receipt Date: 20251028
  Transmission Date: 20260117
  Serious: Yes (Other)
  Sender: RANBAXY
  Company Number: TW-SUN PHARMACEUTICAL INDUSTRIES LTD-2025R1-533575

PATIENT
  Age: 3 Month
  Sex: Female

DRUGS (7)
  1. OCTREOTIDE [Suspect]
     Active Substance: OCTREOTIDE
     Indication: Hyperinsulinaemia
     Dosage: 4 MICROGRAM/KILOGRAM, DAILY
     Route: 058
  2. OCTREOTIDE [Suspect]
     Active Substance: OCTREOTIDE
     Dosage: 5.2 MICROGRAM/KILOGRAM, DAILY
     Route: 058
  3. OCTREOTIDE [Suspect]
     Active Substance: OCTREOTIDE
     Dosage: 6.52 MICROGRAM/KILOGRAM, DAILY
     Route: 058
  4. DIAZOXIDE [Suspect]
     Active Substance: DIAZOXIDE
     Indication: Hyperinsulinaemia
     Dosage: 3 MILLIGRAM/KILOGRAM, DAILY
     Route: 065
  5. DIAZOXIDE [Suspect]
     Active Substance: DIAZOXIDE
     Dosage: 11.9 MILLIGRAM/KILOGRAM, DAILY
     Route: 065
  6. DIAZOXIDE [Suspect]
     Active Substance: DIAZOXIDE
     Dosage: 13.96 MILLIGRAM/KILOGRAM, DAILY
     Route: 065
  7. DIAZOXIDE [Suspect]
     Active Substance: DIAZOXIDE
     Dosage: 13.96 MILLIGRAM/KILOGRAM, DAILY
     Route: 065

REACTIONS (1)
  - Therapy partial responder [Unknown]
